FAERS Safety Report 8823771 (Version 1)
Quarter: 2012Q4

REPORT INFORMATION
  Report Type: 
  Country: US (occurrence: US)
  Receive Date: 20121003
  Receipt Date: 20121003
  Transmission Date: 20130627
  Serious: Yes (Hospitalization, Other)
  Sender: FDA-Public Use
  Company Number: US-009507513-1210USA000863

PATIENT
  Age: 67 Year
  Sex: Female

DRUGS (2)
  1. JANUMET [Suspect]
     Dosage: 1 DF, qd
     Route: 048
  2. WELCHOL [Concomitant]

REACTIONS (4)
  - Abdominal pain upper [Unknown]
  - Pain in extremity [Unknown]
  - Pain [Unknown]
  - Pancreatitis acute [Unknown]
